FAERS Safety Report 4871492-9 (Version None)
Quarter: 2005Q4

REPORT INFORMATION
  Report Type: 
  Country: None (occurrence: None)
  Receive Date: 20051229
  Receipt Date: 20051208
  Transmission Date: 20060501
  Serious: Yes (Hospitalization)
  Sender: FDA-Public Use
  Company Number: C-05-0054

PATIENT
  Age: 50 Year
  Sex: Male
  Weight: 45.3597 kg

DRUGS (3)
  1. NYSTATIN [Suspect]
     Indication: OROPHARYNGEAL CANDIDIASIS
     Dosage: 5 CC SWISH AND EXPECTORATE 4 TIMES PER DAY (SINGLE DOSE)
     Dates: start: 20051207
  2. MORPHINE SULFATE ELIXIR [Concomitant]
  3. COMBIVENT [Concomitant]

REACTIONS (7)
  - ANAPHYLACTIC REACTION [None]
  - FALL [None]
  - MOUTH HAEMORRHAGE [None]
  - NO REACTION ON PREVIOUS EXPOSURE TO DRUG [None]
  - POST PROCEDURAL HAEMORRHAGE [None]
  - RESPIRATORY DISTRESS [None]
  - TREATMENT NONCOMPLIANCE [None]
